FAERS Safety Report 25567269 (Version 1)
Quarter: 2025Q3

REPORT INFORMATION
  Report Type: Spontaneous
  Country: JP (occurrence: JP)
  Receive Date: 20250716
  Receipt Date: 20250716
  Transmission Date: 20251020
  Serious: Yes (Other)
  Sender: BAYER HEALTHCARE PHARMACEUTICALS INC.
  Company Number: JP-BAYER-2025A092960

PATIENT
  Age: 76 Year
  Sex: Male
  Weight: 73.6 kg

DRUGS (7)
  1. NUBEQA [Suspect]
     Active Substance: DAROLUTAMIDE
     Indication: Prostate cancer
     Dosage: 2 DF, BID
     Route: 048
     Dates: start: 20241202, end: 20250609
  2. Zilmlo takeda teva [Concomitant]
  3. DEGARELIX [Concomitant]
     Active Substance: DEGARELIX
  4. DEXAMETHASONE SODIUM PHOSPHATE [Concomitant]
     Active Substance: DEXAMETHASONE SODIUM PHOSPHATE
  5. DENOSUMAB [Concomitant]
     Active Substance: DENOSUMAB
  6. PEGFILGRASTIM [Concomitant]
     Active Substance: PEGFILGRASTIM
  7. DOCETAXEL [Concomitant]
     Active Substance: DOCETAXEL

REACTIONS (3)
  - Renal impairment [None]
  - Face oedema [Recovering/Resolving]
  - Oedema peripheral [Recovering/Resolving]
